FAERS Safety Report 25764826 (Version 1)
Quarter: 2025Q3

REPORT INFORMATION
  Report Type: Spontaneous
  Country: BR (occurrence: BR)
  Receive Date: 20250905
  Receipt Date: 20250905
  Transmission Date: 20251021
  Serious: Yes (Other)
  Sender: SANDOZ
  Company Number: BR-002147023-NVSC2024BR155916

PATIENT
  Sex: Female

DRUGS (7)
  1. DIPYRONE [Suspect]
     Active Substance: DIPYRONE
     Indication: Pelvic pain
     Route: 065
  2. EXEMESTANE [Suspect]
     Active Substance: EXEMESTANE
     Indication: Product used for unknown indication
     Dosage: 25 MG, QD, (1 TABLET A DAY IN THE MORNING)
     Route: 065
  3. LETROZOLE [Suspect]
     Active Substance: LETROZOLE
     Indication: Breast cancer
     Route: 065
  4. OMEPRAZOLE [Suspect]
     Active Substance: OMEPRAZOLE
     Indication: Product used for unknown indication
     Dosage: 20 MG, QD, (1 TABLET ON AN EMPTY STOMACH IN  THE MORNING)
     Route: 065
  5. TAMOXIFEN [Suspect]
     Active Substance: TAMOXIFEN
     Indication: Breast cancer
     Route: 048
  6. ENALAPRIL [Concomitant]
     Active Substance: ENALAPRIL
     Indication: Hypertension
     Dosage: 20 MG, BID,10 MG, BID (1 TABLET TWICE A DAY/MORNING  AND EVENING)
     Route: 065
     Dates: start: 2010
  7. HYDROCHLOROTHIAZIDE [Concomitant]
     Active Substance: HYDROCHLOROTHIAZIDE
     Indication: Hypertension
     Dosage: 25 MG, QD,25 MG (1 TABLET A DAY IN THE MORNING)
     Route: 065
     Dates: start: 2010

REACTIONS (13)
  - Metastasis [Unknown]
  - Humoral immune defect [Unknown]
  - Eye irritation [Unknown]
  - Peripheral swelling [Recovered/Resolved]
  - Gout [Unknown]
  - Blood uric acid increased [Unknown]
  - Spinal pain [Unknown]
  - Pelvic pain [Unknown]
  - Anaemia [Unknown]
  - Red blood cell count increased [Unknown]
  - Platelet count decreased [Unknown]
  - Dry skin [Unknown]
  - Lacrimation increased [Unknown]

NARRATIVE: CASE EVENT DATE: 20220101
